FAERS Safety Report 25665931 (Version 1)
Quarter: 2025Q3

REPORT INFORMATION
  Report Type: Spontaneous
  Country: US (occurrence: US)
  Receive Date: 20250811
  Receipt Date: 20250811
  Transmission Date: 20251021
  Serious: Yes (Other)
  Sender: AMGEN
  Company Number: US-AMGEN-USASP2025157147

PATIENT
  Age: 11 Year
  Sex: Male

DRUGS (5)
  1. RITUXIMAB [Suspect]
     Active Substance: RITUXIMAB
     Indication: Diffuse large B-cell lymphoma
     Route: 029
  2. PREDNISONE [Suspect]
     Active Substance: PREDNISONE
     Indication: Diffuse large B-cell lymphoma
     Route: 065
  3. CYCLOPHOSPHAMIDE [Concomitant]
     Active Substance: CYCLOPHOSPHAMIDE
     Indication: Diffuse large B-cell lymphoma
     Route: 065
  4. DOXORUBICIN [Concomitant]
     Active Substance: DOXORUBICIN
     Indication: Diffuse large B-cell lymphoma
  5. VINBLASTINE [Concomitant]
     Active Substance: VINBLASTINE
     Indication: Diffuse large B-cell lymphoma

REACTIONS (6)
  - Meningitis aseptic [Recovered/Resolved]
  - Neuropathy peripheral [Recovered/Resolved]
  - Febrile neutropenia [Recovered/Resolved]
  - Off label use [Unknown]
  - Gastritis [Recovered/Resolved]
  - Mucosal inflammation [Recovered/Resolved]
